FAERS Safety Report 6666395-3 (Version None)
Quarter: 2010Q2

REPORT INFORMATION
  Report Type: 
  Country: None (occurrence: None)
  Receive Date: 20100402
  Receipt Date: 20100401
  Transmission Date: 20101027
  Serious: Yes (Life-Threatening, Disabling)
  Sender: FDA-Public Use
  Company Number: JP-B.I. PHARMACEUTICALS,INC./RIDGEFIELD-2010-BP-00149NB

PATIENT
  Sex: Female
  Weight: 67 kg

DRUGS (8)
  1. MICARDIS [Suspect]
     Indication: BLOOD PRESSURE MANAGEMENT
     Dosage: 40 MG
     Route: 048
     Dates: start: 20091211, end: 20100106
  2. CALBLOCK [Concomitant]
     Indication: HYPERTENSION
     Dosage: 8 MG
     Route: 048
     Dates: start: 20090101
  3. ONON [Concomitant]
     Indication: ASTHMA
     Dosage: 450 MG
     Route: 048
     Dates: start: 20091104
  4. PIMOBENDAN [Concomitant]
     Indication: CARDIAC FAILURE
     Dosage: 5 MG
     Route: 048
     Dates: start: 20091118
  5. KREMEZIN [Concomitant]
     Indication: RENAL IMPAIRMENT
     Dosage: 6 G
     Route: 048
     Dates: start: 20091202
  6. MERISLON [Concomitant]
     Indication: DIZZINESS
     Dosage: 18 MG
     Route: 048
     Dates: start: 20091221
  7. KINEDAK [Concomitant]
     Indication: DIABETIC NEUROPATHY
     Dosage: 150 MG
     Route: 065
     Dates: start: 20091226
  8. FERROMIA [Concomitant]
     Indication: IRON DEFICIENCY ANAEMIA
     Dosage: 50 MG
     Route: 065
     Dates: start: 20091204

REACTIONS (14)
  - ACTIVATED PARTIAL THROMBOPLASTIN TIME PROLONGED [None]
  - ASPARTATE AMINOTRANSFERASE INCREASED [None]
  - BLOOD ALBUMIN DECREASED [None]
  - BLOOD ALKALINE PHOSPHATASE INCREASED [None]
  - BLOOD CALCIUM DECREASED [None]
  - BLOOD CREATINE PHOSPHOKINASE INCREASED [None]
  - BLOOD LACTATE DEHYDROGENASE INCREASED [None]
  - BRAIN NATRIURETIC PEPTIDE INCREASED [None]
  - HAEMATOCRIT DECREASED [None]
  - HAEMOGLOBIN DECREASED [None]
  - HYPOGLYCAEMIA [None]
  - LOW DENSITY LIPOPROTEIN INCREASED [None]
  - PROTEIN TOTAL DECREASED [None]
  - RED BLOOD CELL COUNT DECREASED [None]
